FAERS Safety Report 5683564-X (Version None)
Quarter: 2008Q2

REPORT INFORMATION
  Report Type: 
  Country: None (occurrence: None)
  Receive Date: 20080321
  Receipt Date: 20071112
  Transmission Date: 20081010
  Serious: Yes (Other)
  Sender: FDA-Public Use
  Company Number: 200717948US

PATIENT
  Age: 39 Year
  Sex: Female

DRUGS (1)
  1. CLOMID [Suspect]
     Dosage: PO
     Route: 048

REACTIONS (1)
  - ABORTION SPONTANEOUS [None]
